FAERS Safety Report 4372236-X (Version None)
Quarter: 2004Q2

REPORT INFORMATION
  Report Type: 
  Country: None (occurrence: None)
  Receive Date: 20040603
  Receipt Date: 20040603
  Transmission Date: 20050107
  Serious: Yes (Hospitalization)
  Sender: FDA-Public Use
  Company Number: None

PATIENT
  Age: 67 Year
  Sex: Female
  Weight: 78.9259 kg

DRUGS (1)
  1. ORAL TOPOTECAN 0.3 MG/M2 PO BID [Suspect]
     Indication: OVARIAN CANCER
     Dosage: 0.25 MG 2 CAP BID ORAL
     Route: 048
     Dates: start: 20040403, end: 20040509

REACTIONS (1)
  - CHEST DISCOMFORT [None]
